FAERS Safety Report 14329801 (Version 4)
Quarter: 2019Q4

REPORT INFORMATION
  Report Type: Spontaneous
  Country: DE (occurrence: DE)
  Receive Date: 20171227
  Receipt Date: 20191203
  Transmission Date: 20200122
  Serious: Yes (Hospitalization)
  Sender: FDA-Public Use
  Company Number: DE-TEVA-2017-DE-836934

PATIENT
  Age: 64 Year
  Sex: Male
  Weight: 65 kg

DRUGS (14)
  1. CARBOPLATIN. [Suspect]
     Active Substance: CARBOPLATIN
     Indication: NON-SMALL CELL LUNG CANCER
     Dosage: 6 MG MIN/ML
     Route: 041
     Dates: start: 20170421, end: 20170512
  2. PALONOSETRON. [Concomitant]
     Active Substance: PALONOSETRON HYDROCHLORIDE
     Indication: PROPHYLAXIS
     Dosage: .25 MILLIGRAM DAILY; DAILY DOSE: 0.25 MG MILLIGRAM(S) EVERY DAY
     Route: 041
     Dates: start: 20170505, end: 20170505
  3. PALONOSETRON. [Concomitant]
     Active Substance: PALONOSETRON HYDROCHLORIDE
     Dosage: .25 MILLIGRAM DAILY; .25 MILLIGRAM
     Route: 041
     Dates: start: 20170512, end: 20170512
  4. PALONOSETRON. [Concomitant]
     Active Substance: PALONOSETRON HYDROCHLORIDE
     Dosage: .25 MILLIGRAM DAILY; .25 MILLIGRAM
     Route: 041
     Dates: start: 20170421, end: 20170421
  5. CLEXANE [Concomitant]
     Active Substance: ENOXAPARIN SODIUM
     Indication: PROPHYLAXIS
     Dosage: .4 ML DAILY; .4 MILLILITER
     Route: 058
     Dates: start: 20170527, end: 20170528
  6. ABRAXANE [Suspect]
     Active Substance: PACLITAXEL
     Indication: NON-SMALL CELL LUNG CANCER
     Route: 041
     Dates: start: 20170512, end: 20170512
  7. DEXAMETHASONE. [Concomitant]
     Active Substance: DEXAMETHASONE
     Dosage: 20 MILLIGRAM
     Route: 041
     Dates: start: 20170512, end: 20170512
  8. CLEXANE [Concomitant]
     Active Substance: ENOXAPARIN SODIUM
     Dosage: .4 ML DAILY; .4 MILLILITER
     Route: 058
     Dates: start: 20170530
  9. NEUPOGEN [Concomitant]
     Active Substance: FILGRASTIM
     Indication: PROPHYLAXIS
     Dosage: 300 MICROGRAM DAILY; 300 MICROGRAM
     Route: 041
     Dates: start: 20170519, end: 20170521
  10. ABRAXANE [Suspect]
     Active Substance: PACLITAXEL
     Route: 041
     Dates: start: 20170421
  11. NEUPOGEN [Concomitant]
     Active Substance: FILGRASTIM
     Dosage: .5 ML DAILY; .5 MILLILITER
     Route: 041
     Dates: start: 20170512, end: 20170512
  12. PALONOSETRON. [Concomitant]
     Active Substance: PALONOSETRON HYDROCHLORIDE
     Dosage: .25 MILLIGRAM
     Route: 041
     Dates: start: 20170428, end: 20170428
  13. NEUPOGEN [Concomitant]
     Active Substance: FILGRASTIM
     Dosage: .5 MILLILITER
     Route: 058
     Dates: start: 20170519, end: 20170521
  14. DEXAMETHASONE. [Concomitant]
     Active Substance: DEXAMETHASONE
     Indication: PROPHYLAXIS
     Dosage: 20 MILLIGRAM DAILY; 20 MILLIGRAM
     Route: 041
     Dates: start: 20170421, end: 20170421

REACTIONS (5)
  - Dehydration [Recovered/Resolved]
  - Acute kidney injury [Not Recovered/Not Resolved]
  - Hypokalaemia [Recovered/Resolved]
  - Stomatitis [Recovered/Resolved]
  - Leukopenia [Recovered/Resolved]

NARRATIVE: CASE EVENT DATE: 20170512
